FAERS Safety Report 5884430-7 (Version None)
Quarter: 2008Q3

REPORT INFORMATION
  Report Type: 
  Country: None (occurrence: None)
  Receive Date: 20080915
  Receipt Date: 20080903
  Transmission Date: 20090109
  Serious: Yes (Hospitalization, Other)
  Sender: FDA-Public Use
  Company Number: US-PFIZER INC-2008074302

PATIENT
  Sex: Female
  Weight: 80.4 kg

DRUGS (17)
  1. PREDNISONE TAB [Suspect]
     Dates: start: 19840101
  2. METHOTREXATE [Suspect]
     Dosage: DAILY DOSE:15MG
     Route: 048
     Dates: start: 19840101
  3. ETANERCEPT [Suspect]
     Indication: RHEUMATOID ARTHRITIS
     Dosage: DAILY DOSE:50MG
     Route: 058
     Dates: start: 20060601
  4. ESOMEPRAZOLE MAGNESIUM [Concomitant]
  5. ALENDRONATE SODIUM [Concomitant]
     Dosage: DAILY DOSE:20MG
     Route: 048
  6. ATENOLOL [Concomitant]
     Dosage: DAILY DOSE:50MG
     Route: 048
  7. LISINOPRIL [Concomitant]
     Dosage: DAILY DOSE:2.5MG
     Route: 048
  8. FOLIC ACID [Concomitant]
     Dosage: DAILY DOSE:1MG
     Route: 048
     Dates: start: 19840101
  9. NABUMETONE [Concomitant]
     Dosage: DAILY DOSE:5MG
     Route: 048
  10. LEVOTHYROXINE SODIUM [Concomitant]
     Dosage: DAILY DOSE:50MCG
     Route: 048
  11. FOLATE SODIUM [Concomitant]
  12. PANTOPRAZOLE SODIUM [Concomitant]
     Dosage: DAILY DOSE:40MG
     Route: 048
  13. OS-CAL [Concomitant]
     Dosage: DAILY DOSE:500MG
     Route: 048
  14. ACETAMINOPHEN AND OXYCODONE HCL [Concomitant]
     Route: 048
  15. DOCUSATE SODIUM [Concomitant]
     Route: 048
  16. CLINDAMYCIN HCL [Concomitant]
     Route: 048
  17. LEVOFLOXACIN [Concomitant]
     Dosage: DAILY DOSE:500MG
     Route: 048

REACTIONS (7)
  - ANGIOPLASTY [None]
  - BALANCE DISORDER [None]
  - CARDIAC FAILURE CONGESTIVE [None]
  - CELLULITIS [None]
  - FALL [None]
  - HUMERUS FRACTURE [None]
  - SKIN ULCER [None]
